FAERS Safety Report 13182770 (Version 1)
Quarter: 2017Q1

REPORT INFORMATION
  Report Type: Spontaneous
  Country: US (occurrence: US)
  Receive Date: 20170203
  Receipt Date: 20170203
  Transmission Date: 20170428
  Serious: No
  Sender: FDA-Public Use
  Company Number: US-PFIZER INC-2017049040

PATIENT
  Sex: Female

DRUGS (1)
  1. FENTANYL CITRATE. [Suspect]
     Active Substance: FENTANYL CITRATE

REACTIONS (2)
  - Withdrawal syndrome [Unknown]
  - Arthropathy [Unknown]

NARRATIVE: CASE EVENT DATE: 201701
